FAERS Safety Report 18189607 (Version 1)
Quarter: 2020Q3

REPORT INFORMATION
  Report Type: Spontaneous
  Country: CA (occurrence: CA)
  Receive Date: 20200824
  Receipt Date: 20200824
  Transmission Date: 20201103
  Serious: Yes (Congenital Anomaly)
  Sender: FDA-Public Use
  Company Number: CA-TEVA-2020-CA-1817600

PATIENT
  Age: 53 Year
  Sex: Female

DRUGS (9)
  1. FLUCONAZOLE. [Suspect]
     Active Substance: FLUCONAZOLE
     Indication: BENIGN FAMILIAL PEMPHIGUS
     Route: 048
  2. ALITRETINOIN [Suspect]
     Active Substance: ALITRETINOIN
     Indication: BENIGN FAMILIAL PEMPHIGUS
     Route: 065
  3. CLOTRIMAZOLE. [Suspect]
     Active Substance: CLOTRIMAZOLE
     Indication: BENIGN FAMILIAL PEMPHIGUS
     Route: 061
  4. FLUCONAZOLE. [Suspect]
     Active Substance: FLUCONAZOLE
     Route: 065
  5. ALITRETINOIN [Suspect]
     Active Substance: ALITRETINOIN
     Indication: PRODUCT USED FOR UNKNOWN INDICATION
     Route: 065
  6. ONABOTULINUMTOXINA [Concomitant]
     Active Substance: ONABOTULINUMTOXINA
     Indication: BENIGN FAMILIAL PEMPHIGUS
     Route: 042
  7. ALITRETINOIN [Suspect]
     Active Substance: ALITRETINOIN
     Route: 065
  8. ONABOTULINUMTOXINA [Concomitant]
     Active Substance: ONABOTULINUMTOXINA
     Route: 065
  9. ALITRETINOIN [Suspect]
     Active Substance: ALITRETINOIN
     Indication: PRODUCT USED FOR UNKNOWN INDICATION
     Route: 065

REACTIONS (9)
  - Fatigue [Recovered/Resolved]
  - Benign familial pemphigus [Recovered/Resolved]
  - Condition aggravated [Recovered/Resolved]
  - Treatment failure [Recovered/Resolved]
  - Blood cholesterol increased [Recovered/Resolved]
  - Therapeutic product effect incomplete [Recovered/Resolved]
  - Drug intolerance [Recovered/Resolved]
  - Xerosis [Recovered/Resolved]
  - Drug ineffective [Unknown]
